FAERS Safety Report 24272510 (Version 1)
Quarter: 2024Q3

REPORT INFORMATION
  Report Type: Report from Study
  Country: IL (occurrence: IL)
  Receive Date: 20240902
  Receipt Date: 20240902
  Transmission Date: 20241016
  Serious: Yes (Other)
  Sender: EMD SERONO INC
  Company Number: IL-Merck Healthcare KGaA-2024046197

PATIENT
  Age: 71 Year
  Sex: Female

DRUGS (1)
  1. REBIF [Suspect]
     Active Substance: INTERFERON BETA-1A
     Indication: Multiple sclerosis
     Dates: start: 20010101, end: 202310

REACTIONS (1)
  - Breast neoplasm [Not Recovered/Not Resolved]

NARRATIVE: CASE EVENT DATE: 20231001
